FAERS Safety Report 13839134 (Version 1)
Quarter: 2017Q3

REPORT INFORMATION
  Report Type: Spontaneous
  Country: US (occurrence: US)
  Receive Date: 20170807
  Receipt Date: 20170807
  Transmission Date: 20171127
  Serious: No
  Sender: FDA-Public Use
  Company Number: US-BAYER-2017-150612

PATIENT
  Age: 6 Year
  Sex: Female

DRUGS (1)
  1. CLARITIN [Suspect]
     Active Substance: LORATADINE
     Dosage: 3 DF, ONCE
     Dates: start: 20170805, end: 20170805

REACTIONS (2)
  - Failure of child resistant mechanism for pharmaceutical product [None]
  - Accidental exposure to product by child [None]

NARRATIVE: CASE EVENT DATE: 20170805
